FAERS Safety Report 9495527 (Version 1)
Quarter: 2013Q3

REPORT INFORMATION
  Report Type: Spontaneous
  Country: US (occurrence: US)
  Receive Date: 20130903
  Receipt Date: 20130903
  Transmission Date: 20140515
  Serious: No
  Sender: FDA-Public Use
  Company Number: US-SANOFI-AVENTIS-2013SA051773

PATIENT
  Sex: Female

DRUGS (1)
  1. ALLEGRA [Suspect]

REACTIONS (2)
  - Headache [Unknown]
  - Drug administered to patient of inappropriate age [Unknown]
